FAERS Safety Report 15406439 (Version 1)
Quarter: 2018Q3

REPORT INFORMATION
  Report Type: Spontaneous
  Country: CA (occurrence: CA)
  Receive Date: 20180920
  Receipt Date: 20180920
  Transmission Date: 20181010
  Serious: Yes (Other)
  Sender: FDA-Public Use
  Company Number: PHHY2018CA095564

PATIENT
  Age: 8 Year
  Sex: Female

DRUGS (2)
  1. TRAMETINIB [Suspect]
     Active Substance: TRAMETINIB
     Indication: ASTROCYTOMA, LOW GRADE
     Dosage: 0.02 MG/KG, QD
     Route: 065
  2. TRAMETINIB [Suspect]
     Active Substance: TRAMETINIB
     Dosage: UNK

REACTIONS (2)
  - Dermatitis acneiform [Recovering/Resolving]
  - Product use in unapproved indication [Unknown]
